FAERS Safety Report 23923992 (Version 1)
Quarter: 2024Q2

REPORT INFORMATION
  Report Type: Spontaneous
  Country: FR (occurrence: None)
  Receive Date: 20240531
  Receipt Date: 20240531
  Transmission Date: 20240715
  Serious: Yes (Hospitalization)
  Sender: FDA-Public Use
  Company Number: FR-ROCHE-3568721

PATIENT
  Age: 56 Year
  Sex: Male

DRUGS (1)
  1. COLUMVI [Suspect]
     Active Substance: GLOFITAMAB-GXBM
     Indication: Diffuse large B-cell lymphoma recurrent
     Route: 042
     Dates: start: 20240411

REACTIONS (2)
  - Drug intolerance [Unknown]
  - Immune effector cell-associated neurotoxicity syndrome [Unknown]
